FAERS Safety Report 16151549 (Version 1)
Quarter: 2019Q2

REPORT INFORMATION
  Report Type: Report from Study
  Country: ES (occurrence: ES)
  Receive Date: 20190403
  Receipt Date: 20190403
  Transmission Date: 20190711
  Serious: Yes (Other)
  Sender: FDA-Public Use
  Company Number: ES-JNJFOC-20190339048

PATIENT
  Age: 55 Year
  Sex: Female

DRUGS (3)
  1. REVLIMID [Suspect]
     Active Substance: LENALIDOMIDE
     Indication: PLASMA CELL MYELOMA
     Route: 065
  2. DARZALEX [Suspect]
     Active Substance: DARATUMUMAB
     Indication: PLASMA CELL MYELOMA
     Route: 065
  3. DEXAMETHASONE. [Suspect]
     Active Substance: DEXAMETHASONE
     Indication: PLASMA CELL MYELOMA
     Route: 065

REACTIONS (37)
  - Hospitalisation [Unknown]
  - Infusion related reaction [Unknown]
  - Fatigue [Unknown]
  - Arthralgia [Unknown]
  - Anxiety [Unknown]
  - Eye irritation [Unknown]
  - Plasma cell myeloma [Unknown]
  - Dyspepsia [Unknown]
  - Asthenia [Unknown]
  - Depression [Unknown]
  - Bone pain [Unknown]
  - Paraesthesia [Unknown]
  - Nerve injury [Unknown]
  - Back pain [Unknown]
  - Alopecia [Unknown]
  - Agitation [Unknown]
  - Body dysmorphic disorder [Unknown]
  - Nephropathy [Unknown]
  - Pain [Unknown]
  - Muscle spasms [Unknown]
  - Decreased appetite [Unknown]
  - Libido decreased [Unknown]
  - Loss of personal independence in daily activities [Unknown]
  - Tension [Unknown]
  - Irritability [Unknown]
  - Pain in extremity [Unknown]
  - Malaise [Unknown]
  - Dry mouth [Unknown]
  - Headache [Unknown]
  - Gait disturbance [Unknown]
  - Constipation [Unknown]
  - Restlessness [Unknown]
  - Fear of death [Unknown]
  - Eye pain [Unknown]
  - Diarrhoea [Unknown]
  - Insomnia [Unknown]
  - Thirst [Unknown]
